FAERS Safety Report 17558132 (Version 1)
Quarter: 2020Q1

REPORT INFORMATION
  Report Type: Spontaneous
  Country: FR (occurrence: FR)
  Receive Date: 20200318
  Receipt Date: 20200318
  Transmission Date: 20200409
  Serious: Yes (Hospitalization)
  Sender: FDA-Public Use
  Company Number: FR-TEVA-2020-FR-1202928

PATIENT
  Age: 60 Year
  Sex: Male
  Weight: 83 kg

DRUGS (3)
  1. RAPAMUNE [Interacting]
     Active Substance: SIROLIMUS
     Indication: FASCIITIS
     Dosage: 4 MG
     Route: 048
     Dates: start: 20191226
  2. ELIQUIS [Interacting]
     Active Substance: APIXABAN
     Indication: ATRIAL FIBRILLATION
     Dosage: 1 DOSAGE FORMS
     Route: 048
     Dates: start: 20190115
  3. AMIODARONE [Suspect]
     Active Substance: AMIODARONE
     Indication: ATRIAL FIBRILLATION
     Dosage: 200 MILLIGRAM
     Route: 048
     Dates: start: 20200115

REACTIONS (2)
  - Epistaxis [Recovering/Resolving]
  - Drug interaction [Unknown]

NARRATIVE: CASE EVENT DATE: 202001
